FAERS Safety Report 15992939 (Version 1)
Quarter: 2019Q1

REPORT INFORMATION
  Report Type: Report from Study
  Country: IL (occurrence: IL)
  Receive Date: 20190222
  Receipt Date: 20190222
  Transmission Date: 20190418
  Serious: Yes (Hospitalization)
  Sender: FDA-Public Use
  Company Number: IL-IPSEN BIOPHARMACEUTICALS, INC.-2019-02575

PATIENT
  Age: 45 Year
  Sex: Female

DRUGS (1)
  1. SOMATULINE AUTOGEL 60MG [Suspect]
     Active Substance: LANREOTIDE ACETATE
     Indication: ACROMEGALY
     Route: 058
     Dates: start: 20150805

REACTIONS (7)
  - Rash erythematous [Unknown]
  - Diarrhoea [Recovered/Resolved]
  - Chills [Unknown]
  - Vomiting [Recovered/Resolved]
  - Treatment noncompliance [Unknown]
  - Presyncope [Unknown]
  - Injection site pain [Unknown]

NARRATIVE: CASE EVENT DATE: 20190212
